FAERS Safety Report 7473108-4 (Version None)
Quarter: 2011Q2

REPORT INFORMATION
  Report Type: 
  Country: None (occurrence: None)
  Receive Date: 20110511
  Receipt Date: 20110509
  Transmission Date: 20111010
  Serious: Yes (Hospitalization)
  Sender: FDA-Public Use
  Company Number: FR-ROCHE-776148

PATIENT
  Sex: Female

DRUGS (9)
  1. ROCEPHIN [Suspect]
     Route: 030
     Dates: start: 20110101, end: 20110315
  2. STILNOX [Concomitant]
  3. ATARAX [Concomitant]
  4. CRESTOR [Concomitant]
  5. PARIET [Concomitant]
  6. CIPROFLOXACIN [Suspect]
     Route: 048
     Dates: start: 20110101, end: 20110318
  7. LASIX [Concomitant]
  8. FORADIL [Concomitant]
  9. DAFALGAN [Concomitant]

REACTIONS (1)
  - HEPATITIS [None]
